FAERS Safety Report 22020943 (Version 1)
Quarter: 2023Q1

REPORT INFORMATION
  Report Type: Spontaneous
  Country: US (occurrence: None)
  Receive Date: 20230217
  Receipt Date: 20230217
  Transmission Date: 20230418
  Serious: No
  Sender: FDA-Public Use
  Company Number: None

PATIENT
  Sex: 0

DRUGS (1)
  1. VYVANSE [Suspect]
     Active Substance: LISDEXAMFETAMINE DIMESYLATE
     Indication: Attention deficit hyperactivity disorder
     Dosage: OTHER QUANTITY : 22 CAPSULE(S)?
     Route: 048

REACTIONS (13)
  - Therapeutic product effect decreased [None]
  - Decreased appetite [None]
  - Disturbance in attention [None]
  - Tic [None]
  - Anxiety [None]
  - Product quality issue [None]
  - Depressed level of consciousness [None]
  - Dermatillomania [None]
  - Nonspecific reaction [None]
  - Marital problem [None]
  - Impaired work ability [None]
  - Educational problem [None]
  - Parent-child problem [None]
